FAERS Safety Report 14885697 (Version 2)
Quarter: 2018Q3

REPORT INFORMATION
  Report Type: Spontaneous
  Country: US (occurrence: US)
  Receive Date: 20180511
  Receipt Date: 20180702
  Transmission Date: 20181010
  Serious: Yes (Hospitalization, Disabling)
  Sender: FDA-Public Use
  Company Number: US-ASTRAZENECA-2018SE61632

PATIENT
  Age: 66 Year
  Sex: Male
  Weight: 79.4 kg

DRUGS (3)
  1. FASENRA [Suspect]
     Active Substance: BENRALIZUMAB
     Indication: ASTHMA
     Route: 058
     Dates: start: 20180206, end: 20180607
  2. FASENRA [Suspect]
     Active Substance: BENRALIZUMAB
     Indication: PULMONARY EOSINOPHILIA
     Route: 058
     Dates: start: 20180206, end: 20180607
  3. XOLAIR [Concomitant]
     Active Substance: OMALIZUMAB

REACTIONS (6)
  - Hypersensitivity [Unknown]
  - Alveolitis allergic [Not Recovered/Not Resolved]
  - Viral infection [Unknown]
  - Asthma [Unknown]
  - Off label use [Unknown]
  - Drug effect decreased [Unknown]

NARRATIVE: CASE EVENT DATE: 20180507
